FAERS Safety Report 4376519-9 (Version None)
Quarter: 2004Q2

REPORT INFORMATION
  Report Type: 
  Country: None (occurrence: None)
  Receive Date: 20040614
  Receipt Date: 20040610
  Transmission Date: 20050107
  Serious: Yes (Death)
  Sender: FDA-Public Use
  Company Number: US-BRISTOL-MYERS SQUIBB COMPANY-12610937

PATIENT
  Age: 63 Year
  Sex: Male
  Weight: 83 kg

DRUGS (8)
  1. CARBOPLATIN [Suspect]
     Indication: LUNG NEOPLASM MALIGNANT
     Route: 042
     Dates: start: 20031023, end: 20031023
  2. GEMCITABINE [Suspect]
     Indication: LUNG NEOPLASM MALIGNANT
     Route: 042
     Dates: start: 20031030, end: 20031030
  3. DIGOXIN [Concomitant]
     Indication: ARRHYTHMIA
  4. AVAPRO [Concomitant]
     Indication: HYPERTENSION
     Dates: start: 20000101
  5. PROTONIX [Concomitant]
     Indication: GASTROOESOPHAGEAL REFLUX DISEASE
     Dates: start: 19990101
  6. COUMADIN [Concomitant]
     Indication: PROPHYLAXIS
     Dates: start: 20000101
  7. EPOGEN [Concomitant]
     Indication: ANAEMIA
     Dates: start: 20031023
  8. IMODIUM [Concomitant]
     Indication: DIARRHOEA
     Dates: start: 20031104

REACTIONS (1)
  - CARDIAC ARREST [None]
